FAERS Safety Report 8076535-X (Version None)
Quarter: 2012Q1

REPORT INFORMATION
  Report Type: 
  Country: None (occurrence: None)
  Receive Date: 20120127
  Receipt Date: 20120123
  Transmission Date: 20120608
  Serious: Yes (Other)
  Sender: FDA-Public Use
  Company Number: US-JNJFOC-20111101707

PATIENT
  Sex: Male
  Weight: 109.32 kg

DRUGS (19)
  1. INDAPAMIDE [Concomitant]
     Indication: HYPERTENSION
     Route: 048
  2. HYDROCODONE [Concomitant]
     Indication: PAIN
     Dosage: 10/325
     Route: 048
  3. INDAPAMIDE [Concomitant]
     Route: 048
     Dates: end: 20110601
  4. EFFEXOR [Concomitant]
     Dosage: WITH FOOD
     Route: 065
  5. AMLODIPINE BESYLATE [Concomitant]
     Route: 065
  6. LEVOTHYROXINE SODIUM [Concomitant]
     Route: 065
  7. EFFEXOR [Concomitant]
     Indication: MUSCLE RELAXANT THERAPY
     Dosage: TWO 150 MG
     Route: 048
  8. CODEINE [Concomitant]
     Indication: PAIN
     Route: 048
  9. TRIAMCINOLONE ACETONIDE [Concomitant]
     Dosage: ONE APPLICATION SPARINGLY TO AFFECTED AREA TWICE A DAY
     Route: 065
  10. LEVOTHYROXINE SODIUM [Concomitant]
     Dosage: HALF TABLET FOR ONE WEEK EVERY MORNING ON AN EMPTY STOMACH
     Route: 065
  11. POLYETHYLENE GLYCOL [Concomitant]
     Dosage: 3350 2 CAPFUL WITH WATER
     Route: 065
  12. DURAGESIC-100 [Suspect]
     Route: 062
     Dates: start: 20110601, end: 20110701
  13. LORAZEPAM [Concomitant]
     Route: 065
  14. FENTANYL-100 [Suspect]
     Indication: NEUROPATHY PERIPHERAL
     Route: 062
     Dates: start: 20110701
  15. PROPYLENE GLYCOL [Concomitant]
     Indication: IRRITABLE BOWEL SYNDROME
     Route: 048
     Dates: start: 20060101
  16. VITAMIN B-12 [Concomitant]
     Indication: NUTRITIONAL SUPPORT
     Route: 050
  17. PROTONIX [Concomitant]
     Route: 065
  18. HYDROCODONE BITARTRATE AND ACETAMINOPHEN [Concomitant]
     Indication: PAIN
     Dosage: HYDROCODONE-ACETAMINOPHEN 10-325 MG TABLET ONE AS NEEDED FOR PAIN T.I.D
     Route: 065
  19. DURAGESIC-100 [Suspect]
     Indication: NEUROPATHY PERIPHERAL
     Route: 062

REACTIONS (13)
  - OSTEOARTHRITIS [None]
  - INADEQUATE ANALGESIA [None]
  - HYPERTENSION [None]
  - HYPOTHYROIDISM [None]
  - ARTHRITIS [None]
  - JOINT SWELLING [None]
  - WRONG TECHNIQUE IN DRUG USAGE PROCESS [None]
  - GASTRIC DISORDER [None]
  - HYPERSOMNIA [None]
  - RHABDOMYOLYSIS [None]
  - WEIGHT INCREASED [None]
  - PRODUCT ADHESION ISSUE [None]
  - BACK PAIN [None]
